FAERS Safety Report 10448399 (Version 1)
Quarter: 2014Q3

REPORT INFORMATION
  Report Type: Spontaneous
  Country: US (occurrence: US)
  Receive Date: 20140911
  Receipt Date: 20140911
  Transmission Date: 20150326
  Serious: Yes (Other)
  Sender: FDA-Public Use
  Company Number: US-ABBVIE-14P-163-1279507-00

PATIENT
  Sex: Male

DRUGS (3)
  1. ANDROGEL [Suspect]
     Active Substance: TESTOSTERONE
     Indication: LIBIDO DECREASED
  2. ANDROGEL [Suspect]
     Active Substance: TESTOSTERONE
     Indication: ASTHENIA
     Dates: start: 201105
  3. ANDROGEL [Suspect]
     Active Substance: TESTOSTERONE
     Indication: MOOD ALTERED

REACTIONS (13)
  - Pain [Unknown]
  - Social problem [Unknown]
  - Mental impairment [Unknown]
  - Physical disability [Unknown]
  - Cerebrovascular accident [Unknown]
  - Cerebrovascular accident [Unknown]
  - Impaired work ability [Unknown]
  - Memory impairment [Unknown]
  - Faecal incontinence [Unknown]
  - Emotional distress [Unknown]
  - Anxiety [Unknown]
  - Economic problem [Unknown]
  - Injury [Unknown]

NARRATIVE: CASE EVENT DATE: 201109
